FAERS Safety Report 8335865-4 (Version None)
Quarter: 2012Q2

REPORT INFORMATION
  Report Type: 
  Country: None (occurrence: None)
  Receive Date: 20120504
  Receipt Date: 20120501
  Transmission Date: 20120825
  Serious: No
  Sender: FDA-Public Use
  Company Number: US-PFIZER INC-2012107201

PATIENT
  Sex: Female
  Weight: 77.098 kg

DRUGS (4)
  1. PERCOCET [Suspect]
     Indication: PAIN IN EXTREMITY
     Dosage: 10/325 MG, FOUR TO FIVE TIMES A DAY
  2. LYRICA [Suspect]
     Indication: PAIN IN EXTREMITY
  3. VITAMIN B-12 [Concomitant]
     Indication: VITAMIN B12 DECREASED
     Dosage: UNK
  4. LYRICA [Suspect]
     Indication: FIBROMYALGIA
     Dosage: 50 MG DAILY

REACTIONS (7)
  - MALAISE [None]
  - DRUG INEFFECTIVE [None]
  - SOMNOLENCE [None]
  - PYREXIA [None]
  - DRUG ADMINISTRATION ERROR [None]
  - NAUSEA [None]
  - VISION BLURRED [None]
